FAERS Safety Report 4454170-X (Version None)
Quarter: 2004Q3

REPORT INFORMATION
  Report Type: 
  Country: None (occurrence: None)
  Receive Date: 20040824
  Receipt Date: 20040505
  Transmission Date: 20050211
  Serious: No
  Sender: FDA-Public Use
  Company Number: SU-2004-002347

PATIENT
  Age: 56 Year
  Sex: Female

DRUGS (4)
  1. BENICAR [Suspect]
     Indication: HYPERTENSION
     Dosage: 40 MG QD PO
     Route: 048
  2. LIPITOR [Concomitant]
  3. ZETIA [Concomitant]
  4. ATENOLOL [Concomitant]

REACTIONS (1)
  - HYPERLIPIDAEMIA [None]
